FAERS Safety Report 5022669-3 (Version None)
Quarter: 2006Q2

REPORT INFORMATION
  Report Type: 
  Country: None (occurrence: None)
  Receive Date: 20060609
  Receipt Date: 20060518
  Transmission Date: 20061013
  Serious: Yes (Life-Threatening, Hospitalization)
  Sender: FDA-Public Use
  Company Number: 2006UW11640

PATIENT
  Age: 47 Year
  Sex: Male
  Weight: 103.6 kg

DRUGS (9)
  1. LISINOPRIL [Suspect]
     Indication: HYPERTENSION
     Route: 048
     Dates: start: 20060410
  2. MORPHINE SULFATE [Concomitant]
     Route: 048
     Dates: start: 20020101
  3. CLONIDINE HCL [Concomitant]
     Route: 048
     Dates: start: 20020101
  4. HYDROMORPHONE HYDROCHLORIDE [Concomitant]
     Dates: start: 20020101
  5. NORTRIPTYLINE HCL [Concomitant]
     Indication: MIGRAINE
     Route: 048
     Dates: start: 20050808
  6. TEMAZEPAM [Concomitant]
     Dates: start: 20050808
  7. DIVALPROEX SODIUM [Concomitant]
     Dates: start: 20060330
  8. LANSOPRAZOLE [Concomitant]
     Dates: start: 20060410
  9. CEP-25608 [Concomitant]
     Indication: BREAKTHROUGH PAIN
     Route: 002
     Dates: start: 20050523, end: 20060414

REACTIONS (2)
  - OVERDOSE [None]
  - SUICIDE ATTEMPT [None]
